FAERS Safety Report 5109795-5 (Version None)
Quarter: 2006Q3

REPORT INFORMATION
  Report Type: 
  Country: None (occurrence: None)
  Receive Date: 20060915
  Receipt Date: 20060906
  Transmission Date: 20061208
  Serious: Yes (Other)
  Sender: FDA-Public Use
  Company Number: 2006086278

PATIENT
  Age: 74 Year
  Sex: Male

DRUGS (11)
  1. LYRICA [Suspect]
     Indication: NEURALGIA
     Dosage: 150 MG (75 MG, 2 IN 1 D), ORAL
     Route: 048
  2. ORAMORPH SR [Suspect]
     Indication: DRUG USE FOR UNKNOWN INDICATION
     Dosage: 5 MG (6 MG, 1 IN 1 D)
  3. ALLOPURINOL [Concomitant]
  4. ASPIRIN [Concomitant]
  5. SLOZEM (DILTIAZEM HYDROCHLORIDE) [Concomitant]
  6. PREDNISOLONE [Concomitant]
  7. SALBUTAMOL (SALBUTAMOL) [Concomitant]
  8. QUININE SULFATE [Concomitant]
  9. OXYGEN (OXYGEN) [Concomitant]
  10. CARBOCISTEINE (CARBOCISTEINE) [Concomitant]
  11. FUROSEMIDE [Concomitant]

REACTIONS (8)
  - CONFUSIONAL STATE [None]
  - DEPRESSED LEVEL OF CONSCIOUSNESS [None]
  - DIZZINESS [None]
  - FATIGUE [None]
  - FEELING ABNORMAL [None]
  - ILL-DEFINED DISORDER [None]
  - MEMORY IMPAIRMENT [None]
  - MENTAL STATUS CHANGES [None]
